FAERS Safety Report 9051858 (Version 1)
Quarter: 2013Q1

REPORT INFORMATION
  Report Type: Spontaneous
  Country: FR (occurrence: FR)
  Receive Date: 20130207
  Receipt Date: 20130207
  Transmission Date: 20140127
  Serious: Yes (Hospitalization)
  Sender: FDA-Public Use
  Company Number: FR-009507513-1302FRA001423

PATIENT
  Age: 82 None
  Sex: Male

DRUGS (6)
  1. CHIBRO-PROSCAR [Suspect]
     Indication: BENIGN PROSTATIC HYPERPLASIA
     Dosage: 5 MG, QD
     Route: 048
  2. TIAPRIDAL [Suspect]
     Indication: ABNORMAL BEHAVIOUR
     Dosage: 25-20-25 DF, QD
     Route: 048
  3. PRETERAX [Suspect]
     Indication: HYPERTENSION
     Dosage: 2 MG/0.625 MG, QD
     Route: 048
  4. ISOPTINE [Suspect]
     Indication: HYPERTENSION
     Dosage: 240 MG, QD
     Route: 048
  5. ZOLOFT [Concomitant]
     Indication: DEMENTIA ALZHEIMER^S TYPE
     Dosage: 50 MG, BID
     Route: 048
  6. EXELON (RIVASTIGMINE) [Concomitant]
     Indication: DEMENTIA ALZHEIMER^S TYPE
     Dosage: 4.5 MG, BID
     Route: 048

REACTIONS (2)
  - Orthostatic hypotension [Recovered/Resolved]
  - Fall [Recovered/Resolved]
